FAERS Safety Report 9332893 (Version 1)
Quarter: 2013Q2

REPORT INFORMATION
  Report Type: Spontaneous
  Country: US (occurrence: US)
  Receive Date: 20130606
  Receipt Date: 20130606
  Transmission Date: 20140414
  Serious: No
  Sender: FDA-Public Use
  Company Number: US-BAYER-2013-068312

PATIENT
  Age: 42 Year
  Sex: Female

DRUGS (1)
  1. MIRENA [Suspect]
     Indication: CONTRACEPTION
     Dosage: 20 MCG/24HR, CONT
     Route: 015
     Dates: start: 20130524, end: 20130528

REACTIONS (6)
  - Rash papular [None]
  - Migraine [Recovered/Resolved]
  - Libido decreased [Recovered/Resolved]
  - Sensory loss [Recovered/Resolved]
  - Rash [None]
  - Malaise [Recovered/Resolved]
